FAERS Safety Report 5489698-7 (Version None)
Quarter: 2007Q4

REPORT INFORMATION
  Report Type: 
  Country: None (occurrence: None)
  Receive Date: 20071017
  Receipt Date: 20071017
  Transmission Date: 20080405
  Serious: Yes (Hospitalization)
  Sender: FDA-Public Use
  Company Number: None

PATIENT
  Sex: Male
  Weight: 110 kg

DRUGS (1)
  1. CIPROFLOXACIN 500MG TABLETS ; TEVA. [Suspect]
     Indication: URINARY TRACT INFECTION
     Dosage: 500MG BID PO
     Route: 048
     Dates: start: 20070924, end: 20070927

REACTIONS (4)
  - ASTHENIA [None]
  - CHEST PAIN [None]
  - DYSPNOEA [None]
  - MALAISE [None]
